FAERS Safety Report 16891610 (Version 1)
Quarter: 2019Q4

REPORT INFORMATION
  Report Type: Report from Study
  Country: JP (occurrence: JP)
  Receive Date: 20191007
  Receipt Date: 20191007
  Transmission Date: 20200122
  Serious: Yes (Other)
  Sender: FDA-Public Use
  Company Number: JP-ACTELION-A-CH2019-196264

PATIENT
  Age: 39 Year
  Sex: Female

DRUGS (19)
  1. UPTRAVI [Suspect]
     Active Substance: SELEXIPAG
     Indication: PULMONARY ARTERIAL HYPERTENSION
     Dosage: UNK
     Route: 048
     Dates: start: 20190612, end: 20190710
  2. ADCIRCA [Concomitant]
     Active Substance: TADALAFIL
  3. BETAMETHASONE. [Concomitant]
     Active Substance: BETAMETHASONE
  4. MEDROL [Concomitant]
     Active Substance: METHYLPREDNISOLONE
  5. NEXIUM [Concomitant]
     Active Substance: ESOMEPRAZOLE MAGNESIUM
  6. ACTONEL [Concomitant]
     Active Substance: RISEDRONATE SODIUM
  7. GASMOTIN [Concomitant]
     Active Substance: MOSAPRIDE CITRATE
  8. EDIROL [Concomitant]
     Active Substance: ELDECALCITOL
  9. MIYA-BM [Concomitant]
     Active Substance: CLOSTRIDIUM BUTYRICUM SPORES STRAIN M-55
  10. AZANIN [Suspect]
     Active Substance: AZATHIOPRINE
     Dosage: 75 MG, QD
     Route: 048
     Dates: start: 201906
  11. PROGRAF [Concomitant]
     Active Substance: TACROLIMUS
  12. FERROMIA [Concomitant]
     Active Substance: SODIUM FERROUS CITRATE
  13. MAGNESIUM OXIDE. [Concomitant]
     Active Substance: MAGNESIUM OXIDE
  14. OXYGEN. [Concomitant]
     Active Substance: OXYGEN
  15. AZANIN [Suspect]
     Active Substance: AZATHIOPRINE
     Indication: MIXED CONNECTIVE TISSUE DISEASE
     Dosage: 50 TO 75 MG QD
     Route: 048
     Dates: start: 20190313
  16. AZANIN [Suspect]
     Active Substance: AZATHIOPRINE
     Dosage: 100 MG, QD
     Route: 048
  17. LIPITOR [Concomitant]
     Active Substance: ATORVASTATIN CALCIUM
  18. OPSUMIT [Suspect]
     Active Substance: MACITENTAN
     Indication: PULMONARY ARTERIAL HYPERTENSION
     Dosage: 10 MG, QD
     Route: 048
     Dates: start: 20180822
  19. BIOFERMIN [Concomitant]
     Active Substance: DIETARY SUPPLEMENT\PROBIOTICS

REACTIONS (5)
  - Swelling of eyelid [Recovered/Resolved]
  - White blood cell count decreased [Recovered/Resolved]
  - Malaise [Recovering/Resolving]
  - Palpitations [Recovered/Resolved]
  - Alopecia [Unknown]

NARRATIVE: CASE EVENT DATE: 20190417
